FAERS Safety Report 20581078 (Version 8)
Quarter: 2022Q3

REPORT INFORMATION
  Report Type: Report from Study
  Country: US (occurrence: US)
  Receive Date: 20220311
  Receipt Date: 20220926
  Transmission Date: 20221026
  Serious: Yes (Other)
  Sender: FDA-Public Use
  Company Number: US-NOVARTISPH-NVSC2022US055613

PATIENT
  Age: 59 Year
  Sex: Female

DRUGS (5)
  1. ILARIS [Suspect]
     Active Substance: CANAKINUMAB
     Indication: Pyrexia
     Dosage: 150 MG, QMO
     Route: 058
  2. ILARIS [Suspect]
     Active Substance: CANAKINUMAB
     Dosage: 150 MG, EVERY 4 WEEKS
     Route: 058
     Dates: start: 20220113
  3. BENADRYL [Concomitant]
     Active Substance: DIPHENHYDRAMINE HYDROCHLORIDE
     Indication: Product used for unknown indication
     Dosage: UNK
     Route: 065
  4. EPINEPHRINE [Concomitant]
     Active Substance: EPINEPHRINE
     Indication: Product used for unknown indication
     Dosage: UNK
     Route: 065
  5. EPIPEN [Concomitant]
     Active Substance: EPINEPHRINE
     Indication: Product used for unknown indication
     Dosage: UNK
     Route: 065

REACTIONS (20)
  - Nausea [Not Recovered/Not Resolved]
  - Hypoglycaemia [Not Recovered/Not Resolved]
  - Gastrooesophageal reflux disease [Unknown]
  - Impaired gastric emptying [Unknown]
  - Coeliac disease [Unknown]
  - Peripheral swelling [Not Recovered/Not Resolved]
  - Angioedema [Not Recovered/Not Resolved]
  - Rash macular [Unknown]
  - Urticaria [Unknown]
  - Rash [Unknown]
  - Erythema [Unknown]
  - Dizziness [Not Recovered/Not Resolved]
  - Lymphoedema [Unknown]
  - Dehydration [Unknown]
  - Condition aggravated [Unknown]
  - Malaise [Unknown]
  - Pyrexia [Unknown]
  - Illness [Unknown]
  - Hypersensitivity [Unknown]
  - Nasopharyngitis [Unknown]

NARRATIVE: CASE EVENT DATE: 20220311
